FAERS Safety Report 15743460 (Version 1)
Quarter: 2018Q4

REPORT INFORMATION
  Report Type: Spontaneous
  Country: FR (occurrence: FR)
  Receive Date: 20181220
  Receipt Date: 20181220
  Transmission Date: 20190205
  Serious: Yes (Hospitalization)
  Sender: FDA-Public Use
  Company Number: FR-TEVA-2018-FR-988879

PATIENT
  Age: 59 Year
  Sex: Female
  Weight: 59 kg

DRUGS (2)
  1. DOC?TAXEL [Suspect]
     Active Substance: DOCETAXEL
     Indication: HER-2 POSITIVE BREAST CANCER
     Route: 042
     Dates: start: 20181002, end: 20181002
  2. TRASTUZUMAB  ((MAMMIFERE/HAMSTER/CELLULES CHO)) [Concomitant]
     Active Substance: TRASTUZUMAB
     Route: 042
     Dates: start: 20180706

REACTIONS (2)
  - Musculoskeletal pain [Recovering/Resolving]
  - Colitis [Recovered/Resolved]

NARRATIVE: CASE EVENT DATE: 201810
